FAERS Safety Report 7878382-8 (Version None)
Quarter: 2011Q4

REPORT INFORMATION
  Report Type: 
  Country: None (occurrence: None)
  Receive Date: 20111031
  Receipt Date: 20111020
  Transmission Date: 20120403
  Serious: Yes (Hospitalization)
  Sender: FDA-Public Use
  Company Number: 2011SP049985

PATIENT
  Age: 58 Year
  Sex: Female

DRUGS (2)
  1. REMERON [Suspect]
     Indication: ANXIETY
     Dosage: 30 MG;QD;PO
     Route: 048
     Dates: start: 20100427
  2. REMERON [Suspect]
     Indication: DEPRESSION
     Dosage: 30 MG;QD;PO
     Route: 048
     Dates: start: 20100427

REACTIONS (3)
  - ABSCESS [None]
  - WEIGHT INCREASED [None]
  - LIPOMA [None]
